FAERS Safety Report 5872403-X (Version None)
Quarter: 2008Q3

REPORT INFORMATION
  Report Type: 
  Country: None (occurrence: None)
  Receive Date: 20080905
  Receipt Date: 20080901
  Transmission Date: 20090109
  Serious: Yes (Hospitalization)
  Sender: FDA-Public Use
  Company Number: ES-BAYER-200825423GPV

PATIENT
  Age: 80 Year
  Sex: Female

DRUGS (6)
  1. ADIRO 100/ASA [Suspect]
     Indication: DRUG USE FOR UNKNOWN INDICATION
     Route: 048
     Dates: start: 20021118, end: 20071121
  2. OMEPRAZOLE [Suspect]
     Indication: DRUG USE FOR UNKNOWN INDICATION
     Route: 065
     Dates: start: 20070518, end: 20071121
  3. DEPRAX/TRAZODONE HYDROCHLORIDE [Suspect]
     Indication: DEMENTIA ALZHEIMER'S TYPE
     Route: 048
     Dates: start: 20070615, end: 20071121
  4. EBIXA /MEMANTIN HYDROCHLORIDE [Suspect]
     Indication: DEMENTIA ALZHEIMER'S TYPE
     Route: 048
     Dates: start: 20070615, end: 20071121
  5. EXELON [Suspect]
     Indication: DEMENTIA ALZHEIMER'S TYPE
     Route: 065
     Dates: start: 20021118, end: 20071121
  6. LANTUS/INSULIN GLARGINA [Suspect]
     Indication: DIABETES MELLITUS
     Route: 065
     Dates: start: 20070917, end: 20071121

REACTIONS (1)
  - HEPATITIS TOXIC [None]
